FAERS Safety Report 4854237-8 (Version None)
Quarter: 2005Q4

REPORT INFORMATION
  Report Type: 
  Country: None (occurrence: None)
  Receive Date: 20051212
  Receipt Date: 20041122
  Transmission Date: 20060501
  Serious: Yes (Hospitalization, Other)
  Sender: FDA-Public Use
  Company Number: 2005-00992

PATIENT
  Age: 14 Year
  Sex: Male

DRUGS (2)
  1. TUBERCULIN PPD [Suspect]
     Dosage: 0.5 ML (0.5 ML, 1 IN 1 D), I.M.
     Route: 030
     Dates: start: 20050523
  2. DIPHTERIA AND TETANUS TOXOIDS [10036897 - PROPHYLACTIC VACCCINATION] [Concomitant]

REACTIONS (3)
  - ASTHMA [None]
  - CONDITION AGGRAVATED [None]
  - WRONG DRUG ADMINISTERED [None]
